FAERS Safety Report 10595661 (Version 2)
Quarter: 2015Q1

REPORT INFORMATION
  Report Type: Spontaneous
  Country: JP (occurrence: JP)
  Receive Date: 20141120
  Receipt Date: 20150105
  Transmission Date: 20150720
  Serious: Yes (Other)
  Sender: FDA-Public Use
  Company Number: JP-PFIZER INC-2014318729

PATIENT
  Age: 78 Year
  Sex: Male

DRUGS (11)
  1. WARFARIN [Suspect]
     Active Substance: WARFARIN
     Indication: ANTIPHOSPHOLIPID SYNDROME
     Dosage: 3 MG, DAILY
     Route: 048
     Dates: start: 20141017, end: 20141019
  2. MAINTATE [Concomitant]
     Active Substance: BISOPROLOL FUMARATE
     Dosage: UNK
     Dates: start: 20141009, end: 20141027
  3. SEIBULE [Suspect]
     Active Substance: MIGLITOL
     Indication: DIABETES MELLITUS
     Dosage: 50 MG, 3X/DAY
     Route: 048
     Dates: start: 20141017, end: 20141027
  4. DIART [Suspect]
     Active Substance: AZOSEMIDE
     Indication: POLYURIA
     Dosage: 30 MG, UNK
     Route: 048
     Dates: start: 20141017, end: 20141027
  5. WARFARIN [Suspect]
     Active Substance: WARFARIN
     Dosage: 2.5 MG, DAILY
     Route: 048
     Dates: start: 20141020, end: 20141021
  6. WARFARIN [Suspect]
     Active Substance: WARFARIN
     Dosage: 2 MG, DAILY
     Route: 048
     Dates: start: 20141022, end: 20141022
  7. SENNA [Concomitant]
     Active Substance: SENNA LEAF\SENNOSIDES\SENNOSIDES A AND B
     Dosage: UNK
     Dates: start: 20141007, end: 20141027
  8. LIMAPROST [Concomitant]
     Active Substance: LIMAPROST
     Dosage: UNK
     Dates: start: 20141007, end: 20141024
  9. ALFAROL [Concomitant]
     Active Substance: ALFACALCIDOL
     Dosage: UNK
     Dates: start: 20141007, end: 20141027
  10. URIEF [Concomitant]
     Active Substance: SILODOSIN
     Dosage: UNK
     Dates: start: 20141007, end: 20141027
  11. WARFARIN [Suspect]
     Active Substance: WARFARIN
     Dosage: 1.5 MG, DAILY
     Route: 048
     Dates: start: 20141025, end: 20141027

REACTIONS (4)
  - Platelet count decreased [Recovered/Resolved]
  - Alanine aminotransferase increased [Recovered/Resolved]
  - Aspartate aminotransferase increased [Recovered/Resolved]
  - White blood cell count decreased [Recovered/Resolved]

NARRATIVE: CASE EVENT DATE: 20141027
